FAERS Safety Report 9500441 (Version 1)
Quarter: 2013Q3

REPORT INFORMATION
  Report Type: Spontaneous
  Country: US (occurrence: None)
  Receive Date: 20130903
  Receipt Date: 20130903
  Transmission Date: 20140515
  Serious: Yes (Other)
  Sender: FDA-Public Use
  Company Number: 129796

PATIENT
  Age: 63 Year
  Sex: Female

DRUGS (1)
  1. DAUNORUBICIN HCL [Suspect]
     Indication: ANAESTHETIC COMPLICATION
     Dosage: 346MG TOTAL; 60MG/M2 ON DAYS 1-3
     Dates: start: 20111214

REACTIONS (1)
  - Electrocardiogram QT prolonged [None]
